FAERS Safety Report 7715571-7 (Version None)
Quarter: 2011Q3

REPORT INFORMATION
  Report Type: 
  Country: None (occurrence: None)
  Receive Date: 20110823
  Receipt Date: 20110812
  Transmission Date: 20111222
  Serious: Yes (Life-Threatening, Hospitalization)
  Sender: FDA-Public Use
  Company Number: LEO-2011-00548

PATIENT
  Age: 41 Year
  Sex: Female
  Weight: 38.2 kg

DRUGS (5)
  1. INNOHEP [Suspect]
     Indication: EMBOLISM VENOUS
     Dosage: 8000 IU (8000 IU, 1 IN 1 D), SUBCUTANEOUS, 8000 IU (8000 IU, 1 IN 1 D), SUBCUTANEOUS
     Route: 058
     Dates: start: 20100831, end: 20110103
  2. INNOHEP [Suspect]
     Indication: EMBOLISM VENOUS
     Dosage: 8000 IU (8000 IU, 1 IN 1 D), SUBCUTANEOUS, 8000 IU (8000 IU, 1 IN 1 D), SUBCUTANEOUS
     Route: 058
     Dates: start: 20110108
  3. C-PINK (FOLIC ACID, IRON) [Concomitant]
  4. PACLITAXEL [Concomitant]
  5. CARBOPLATIN [Concomitant]

REACTIONS (11)
  - MELAENA [None]
  - HYPERCHLORHYDRIA [None]
  - DUODENITIS [None]
  - GASTRITIS [None]
  - HAEMATEMESIS [None]
  - ASTHENIA [None]
  - PROTHROMBIN TIME PROLONGED [None]
  - ABDOMINAL PAIN [None]
  - WHITE BLOOD CELL COUNT INCREASED [None]
  - ANAEMIA [None]
  - SMALL INTESTINAL HAEMORRHAGE [None]
